FAERS Safety Report 5727284-1 (Version None)
Quarter: 2008Q2

REPORT INFORMATION
  Report Type: 
  Country: None (occurrence: None)
  Receive Date: 20080430
  Receipt Date: 20080422
  Transmission Date: 20081010
  Serious: No
  Sender: FDA-Public Use
  Company Number: 2008-171870-NL

PATIENT
  Age: 43 Year
  Sex: Female

DRUGS (18)
  1. FOLLITROPIN BETA [Suspect]
     Indication: OVARIAN DISORDER
     Dosage: 150 IU INTRAMUSCULAR
     Route: 030
     Dates: start: 20070625, end: 20070625
  2. FOLLITROPIN BETA [Suspect]
     Indication: OVARIAN DISORDER
     Dosage: 150 IU INTRAMUSCULAR
     Route: 030
     Dates: start: 20070627, end: 20070627
  3. FOLLITROPIN BETA [Suspect]
     Indication: OVARIAN DISORDER
     Dosage: 150 IU INTRAMUSCULAR
     Route: 030
     Dates: start: 20070629, end: 20070703
  4. MENOTROPINS [Suspect]
     Indication: OVARIAN DISORDER
     Dosage: 300 IU INTRAMUSCULAR
     Route: 030
     Dates: start: 20070704, end: 20070705
  5. CHORIONIC GONADTROPIN [Suspect]
     Indication: BLOOD LUTEINISING HORMONE DECREASED
     Dosage: 10000 IU ONCE/5000 IU ONCE/5000 IU ONCE INTRAMUSCULAR
     Route: 030
     Dates: start: 20070705, end: 20070705
  6. CHORIONIC GONADTROPIN [Suspect]
     Indication: LUTEAL PHASE DEFICIENCY
     Dosage: 10000 IU ONCE/5000 IU ONCE/5000 IU ONCE INTRAMUSCULAR
     Route: 030
     Dates: start: 20070705, end: 20070705
  7. CHORIONIC GONADTROPIN [Suspect]
     Indication: BLOOD LUTEINISING HORMONE DECREASED
     Dosage: 10000 IU ONCE/5000 IU ONCE/5000 IU ONCE INTRAMUSCULAR
     Route: 030
     Dates: start: 20070707, end: 20070707
  8. CHORIONIC GONADTROPIN [Suspect]
     Indication: LUTEAL PHASE DEFICIENCY
     Dosage: 10000 IU ONCE/5000 IU ONCE/5000 IU ONCE INTRAMUSCULAR
     Route: 030
     Dates: start: 20070707, end: 20070707
  9. CHORIONIC GONADTROPIN [Suspect]
     Indication: BLOOD LUTEINISING HORMONE DECREASED
     Dosage: 10000 IU ONCE/5000 IU ONCE/5000 IU ONCE INTRAMUSCULAR
     Route: 030
     Dates: start: 20070712, end: 20070712
  10. CHORIONIC GONADTROPIN [Suspect]
     Indication: LUTEAL PHASE DEFICIENCY
     Dosage: 10000 IU ONCE/5000 IU ONCE/5000 IU ONCE INTRAMUSCULAR
     Route: 030
     Dates: start: 20070712, end: 20070712
  11. CLOMIPHENE CITRATE [Suspect]
     Indication: OVARIAN DISORDER
     Dosage: 100 MG ORAL
     Route: 048
     Dates: start: 20070625, end: 20070629
  12. CLOMIPHENE CITRATE [Suspect]
     Indication: OVARIAN DISORDER
     Dosage: 100 MG ORAL
     Route: 048
     Dates: start: 20070702, end: 20070705
  13. PREDNISOLONE [Concomitant]
  14. BUFFERIN [Concomitant]
  15. CETRORELIX ACETATE [Concomitant]
  16. SHIREITOU (TRADITIONAL CHINESE MEDICINE) [Concomitant]
  17. PROGESTERONE [Concomitant]
  18. TOCOPHERYL NICOTINATE [Concomitant]

REACTIONS (2)
  - ABORTION SPONTANEOUS [None]
  - DRUG EXPOSURE DURING PREGNANCY [None]
